FAERS Safety Report 5998707-8 (Version None)
Quarter: 2008Q4

REPORT INFORMATION
  Report Type: 
  Country: None (occurrence: None)
  Receive Date: 20081213
  Receipt Date: 20080718
  Transmission Date: 20090506
  Serious: No
  Sender: FDA-Public Use
  Company Number: US-AMGEN-KDL295341

PATIENT
  Sex: Female

DRUGS (1)
  1. ENBREL [Suspect]
     Indication: RHEUMATOID ARTHRITIS
     Route: 058
     Dates: start: 20050330

REACTIONS (19)
  - BACTERIAL INFECTION [None]
  - DERMAL CYST [None]
  - DIZZINESS [None]
  - FEELING HOT [None]
  - GAIT DISTURBANCE [None]
  - GASTROOESOPHAGEAL REFLUX DISEASE [None]
  - HYPERSENSITIVITY [None]
  - IMPAIRED HEALING [None]
  - LOCALISED INFECTION [None]
  - MALAISE [None]
  - NAUSEA [None]
  - OROPHARYNGEAL PAIN [None]
  - PHARYNGEAL ERYTHEMA [None]
  - RASH [None]
  - RETCHING [None]
  - RHEUMATOID ARTHRITIS [None]
  - SINUSITIS [None]
  - STAPHYLOCOCCAL SKIN INFECTION [None]
  - TRIGGER FINGER [None]
